FAERS Safety Report 22107777 (Version 1)
Quarter: 2023Q1

REPORT INFORMATION
  Report Type: Spontaneous
  Country: US (occurrence: US)
  Receive Date: 20230317
  Receipt Date: 20230317
  Transmission Date: 20230417
  Serious: Yes (Other)
  Sender: FDA-Public Use
  Company Number: US-LUPIN PHARMACEUTICALS INC.-2023-02038

PATIENT
  Sex: Male

DRUGS (12)
  1. CELECOXIB [Suspect]
     Active Substance: CELECOXIB
     Indication: Rhabdoid tumour of the kidney
     Dosage: 250 MILLIGRAM/SQ. METER, BID
     Route: 048
  2. CYCLOPHOSPHAMIDE [Suspect]
     Active Substance: CYCLOPHOSPHAMIDE
     Indication: Rhabdoid tumour of the kidney
     Dosage: 50 MILLIGRAM/SQ. METER, QD FROM DAYS 22-42
     Route: 048
  3. CYCLOPHOSPHAMIDE [Suspect]
     Active Substance: CYCLOPHOSPHAMIDE
     Dosage: 25 MILLIGRAM/SQ. METER, QD ON DAYS 1-21
     Route: 048
  4. ETOPOSIDE [Suspect]
     Active Substance: ETOPOSIDE
     Indication: Rhabdoid tumour of the kidney
     Dosage: 37.5 MILLIGRAM/SQ. METER, QD FROM DAYS 1-21
     Route: 048
  5. VALPROIC ACID [Suspect]
     Active Substance: VALPROIC ACID
     Indication: Rhabdoid tumour of the kidney
     Dosage: 15 MILLIGRAM/KILOGRAM, QD
     Route: 065
  6. TEMOZOLOMIDE [Suspect]
     Active Substance: TEMOZOLOMIDE
     Indication: Rhabdoid tumour of the kidney
     Dosage: 60 MILLIGRAM/SQ. METER, QD ON DAYS 1-21
     Route: 065
  7. BEVACIZUMAB [Suspect]
     Active Substance: BEVACIZUMAB
     Indication: Rhabdoid tumour of the kidney
     Dosage: 5 MILLIGRAM/KILOGRAM EVERY 3 WEEKS
     Route: 065
  8. CARBOPLATIN [Concomitant]
     Active Substance: CARBOPLATIN
     Indication: Rhabdoid tumour of the kidney
     Dosage: UNK
     Route: 065
  9. VINCRISTINE [Concomitant]
     Active Substance: VINCRISTINE
     Indication: Rhabdoid tumour of the kidney
     Dosage: UNK
     Route: 065
  10. DOXORUBICIN [Concomitant]
     Active Substance: DOXORUBICIN
     Indication: Rhabdoid tumour of the kidney
     Dosage: UNK
     Route: 065
  11. IRINOTECAN [Concomitant]
     Active Substance: IRINOTECAN
     Indication: Rhabdoid tumour of the kidney
     Dosage: UNK
     Route: 065
  12. METHOTREXATE [Concomitant]
     Active Substance: METHOTREXATE
     Indication: Rhabdoid tumour of the kidney
     Dosage: UNK HIGH-DOSE
     Route: 065

REACTIONS (3)
  - Bone marrow disorder [Not Recovered/Not Resolved]
  - Neoplasm [Not Recovered/Not Resolved]
  - Off label use [Unknown]
